FAERS Safety Report 9845712 (Version 2)
Quarter: 2014Q1

REPORT INFORMATION
  Report Type: Spontaneous
  Country: US (occurrence: US)
  Receive Date: 20140127
  Receipt Date: 20140127
  Transmission Date: 20141002
  Serious: No
  Sender: FDA-Public Use
  Company Number: US-PFIZER INC-2009181097

PATIENT
  Age: 66 Year
  Sex: Female
  Weight: 49 kg

DRUGS (9)
  1. CHANTIX [Suspect]
     Indication: SMOKING CESSATION THERAPY
     Dosage: 0.5 MG, 1X/DAY
     Dates: start: 20081229
  2. CHANTIX [Suspect]
     Dosage: 1 MG, 2X/DAY
  3. CHANTIX [Suspect]
     Dosage: 0.5 DF, 2X/DAY
  4. CHANTIX [Suspect]
     Dosage: 0.5 MG, 2X/DAY
     Dates: end: 2009
  5. NEXIUM [Concomitant]
     Dosage: UNK
  6. ZYRTEC [Concomitant]
     Dosage: UNK
  7. DIAZIDE [Concomitant]
     Dosage: UNK
  8. MECLIZINE [Concomitant]
     Dosage: UNK
  9. ZOCOR [Concomitant]
     Indication: BLOOD CHOLESTEROL INCREASED
     Dosage: 20MG DAILY

REACTIONS (4)
  - Abdominal pain upper [Recovered/Resolved]
  - Aggression [Recovered/Resolved]
  - Facial pain [Not Recovered/Not Resolved]
  - Rash macular [Not Recovered/Not Resolved]
